FAERS Safety Report 19366740 (Version 1)
Quarter: 2021Q2

REPORT INFORMATION
  Report Type: Report from Study
  Country: DE (occurrence: DE)
  Receive Date: 20210603
  Receipt Date: 20210603
  Transmission Date: 20210717
  Serious: Yes (Hospitalization)
  Sender: FDA-Public Use
  Company Number: DE-MYLANLABS-2021M1031518

PATIENT

DRUGS (10)
  1. SULFAMETHOXAZOLE AND TRIMETHOPRIM [Concomitant]
     Active Substance: SULFAMETHOXAZOLE\TRIMETHOPRIM
     Indication: PROPHYLAXIS
     Route: 065
  2. IFOSFAMIDE. [Concomitant]
     Active Substance: IFOSFAMIDE
     Indication: CENTRAL NERVOUS SYSTEM LYMPHOMA
     Dosage: 800 MG/SQ. METER, HIGH?DOSE SYSTEMIC METHOTREXATE (HDMTX)?BASED CHEMOTHERAPY; INDUCTION THERAPY..
     Route: 042
  3. ARACYTIN [Concomitant]
     Active Substance: CYTARABINE
     Indication: CENTRAL NERVOUS SYSTEM LYMPHOMA
     Dosage: 3000 MILLIGRAM/SQ. METER
     Route: 042
  4. MESNA. [Concomitant]
     Active Substance: MESNA
     Indication: PROPHYLAXIS
     Route: 065
  5. CYTARABINE. [Suspect]
     Active Substance: CYTARABINE
     Indication: CENTRAL NERVOUS SYSTEM LYMPHOMA
     Dosage: 10 MG, INTRACEREBROVENTRICULAR (ICV; MODIFIED BONN PROTOCOL) CHEMOTHERAPY
  6. RITUXIMAB. [Concomitant]
     Active Substance: RITUXIMAB
     Indication: CENTRAL NERVOUS SYSTEM LYMPHOMA
     Dosage: 375 MG/SQ. METER, HIGH?DOSE SYSTEMIC METHOTREXATE (HDMTX)?BASED CHEMOTHERAPY; INDUCTION THERAPY
     Route: 042
  7. METHOTREXATE. [Concomitant]
     Active Substance: METHOTREXATE
     Indication: CENTRAL NERVOUS SYSTEM LYMPHOMA
     Dosage: HIGH?DOSE SYSTEMIC METHOTREXATE (HDMTX)?BASED CHEMOTHERAPY; INDUCTION THERAPY..
     Route: 042
  8. ACICLOVIR [Concomitant]
     Active Substance: ACYCLOVIR
     Indication: PROPHYLAXIS
     Route: 065
  9. METHOTREXATE. [Suspect]
     Active Substance: METHOTREXATE
     Indication: CENTRAL NERVOUS SYSTEM LYMPHOMA
     Dosage: 2.5 MG,INTRACEREBROVENTRICULAR (ICV; MODIFIED BONN PROTOCOL) CHEMOTHERAPY
  10. PREDNISOLONE. [Suspect]
     Active Substance: PREDNISOLONE
     Indication: CENTRAL NERVOUS SYSTEM LYMPHOMA
     Dosage: 3 MG,INTRACEREBROVENTRICULAR (ICV; MODIFIED BONN PROTOCOL) CHEMOTHERAPY

REACTIONS (2)
  - Leukoencephalopathy [Recovered/Resolved]
  - Complication associated with device [Recovered/Resolved]
